FAERS Safety Report 9520848 (Version 1)
Quarter: 2013Q1

REPORT INFORMATION
  Report Type: Spontaneous
  Country: US (occurrence: None)
  Receive Date: 20130305
  Receipt Date: 20130305
  Transmission Date: 20140127
  Serious: Yes (Other)
  Sender: FDA-Public Use
  Company Number: 163-21880-12102047

PATIENT
  Age: 68 Year
  Sex: Female

DRUGS (9)
  1. REVLIMID [Suspect]
     Indication: PLASMA CELL MYELOMA
     Dosage: 5 MG, 21 IN 21 D, PO
     Route: 048
     Dates: start: 20120918
  2. VELCADE (BORTEZOMIB) [Concomitant]
  3. LYRICA (PREGABALIN) [Concomitant]
  4. NEUPOGEN (FILGRASTIM) [Concomitant]
  5. DEXAMETHASONE (DEXAMETHASONE) [Concomitant]
  6. LORAZEPAM (LORAZEPAM) [Concomitant]
  7. FLUCONAZOLE (FLUCONAZOLE) [Concomitant]
  8. DOCUSATE SODIUM (DOCUSATE SODIUM) [Concomitant]
  9. CENTRUM SILVER (CENTRUM SILVER) [Concomitant]

REACTIONS (2)
  - Arthralgia [None]
  - Joint swelling [None]
